FAERS Safety Report 4837535-3 (Version None)
Quarter: 2005Q4

REPORT INFORMATION
  Report Type: 
  Country: None (occurrence: None)
  Receive Date: 20051123
  Receipt Date: 20051123
  Transmission Date: 20060501
  Serious: No
  Sender: FDA-Public Use
  Company Number: None

PATIENT
  Age: 53 Year
  Sex: Male
  Weight: 98.2 kg

DRUGS (2)
  1. LISINOPRIL [Suspect]
     Indication: HYPERTENSION
     Dosage: 5MG, 5MG QD, ORAL
     Route: 048
  2. INSULIN NOVOLIN 70/30 (NPH/REG) [Concomitant]

REACTIONS (2)
  - PHARYNGEAL OEDEMA [None]
  - SWELLING [None]
